FAERS Safety Report 25387357 (Version 1)
Quarter: 2025Q2

REPORT INFORMATION
  Report Type: Spontaneous
  Country: JP (occurrence: JP)
  Receive Date: 20250602
  Receipt Date: 20250602
  Transmission Date: 20250716
  Serious: Yes (Hospitalization, Other)
  Sender: UCB
  Company Number: JP-UCBJ-CD202507107UCBPHAPROD

PATIENT
  Age: 3 Decade
  Sex: Male

DRUGS (3)
  1. LEVETIRACETAM [Suspect]
     Active Substance: LEVETIRACETAM
     Indication: Frontal lobe epilepsy
     Route: 048
  2. PERAMPANEL [Concomitant]
     Active Substance: PERAMPANEL
     Indication: Frontal lobe epilepsy
  3. OLANZAPINE [Concomitant]
     Active Substance: OLANZAPINE
     Indication: Product used for unknown indication

REACTIONS (6)
  - Hallucination [Recovered/Resolved]
  - Delusion [Unknown]
  - Activities of daily living decreased [Unknown]
  - Hypophagia [Unknown]
  - Pyrexia [Recovering/Resolving]
  - Blood creatine phosphokinase increased [Unknown]
